FAERS Safety Report 17117574 (Version 1)
Quarter: 2019Q4

REPORT INFORMATION
  Report Type: Spontaneous
  Country: ID (occurrence: ID)
  Receive Date: 20191205
  Receipt Date: 20191205
  Transmission Date: 20200122
  Serious: Yes (Death, Life-Threatening, Other)
  Sender: FDA-Public Use
  Company Number: ID-JNJFOC-20191140796

PATIENT

DRUGS (2)
  1. CYCLOSERINE. [Suspect]
     Active Substance: CYCLOSERINE
     Indication: TUBERCULOSIS
     Route: 065
  2. SIRTURO [Suspect]
     Active Substance: BEDAQUILINE FUMARATE
     Indication: TUBERCULOSIS
     Route: 048

REACTIONS (48)
  - Hyperuricaemia [Unknown]
  - Hypocalcaemia [Unknown]
  - Blood magnesium decreased [Unknown]
  - Weight decreased [Unknown]
  - Hypernatraemia [Unknown]
  - Meningitis tuberculous [Fatal]
  - Arrhythmia [Unknown]
  - Arthralgia [Unknown]
  - Rash [Unknown]
  - Skin discolouration [Unknown]
  - Blood lactic acid increased [Unknown]
  - Thyroid disorder [Unknown]
  - Hypercalcaemia [Unknown]
  - Hypokalaemia [Unknown]
  - Vomiting [Unknown]
  - Cough [Unknown]
  - Hypercapnia [Unknown]
  - Decreased appetite [Unknown]
  - Dyspnoea [Unknown]
  - Sleep disorder [Unknown]
  - Chest pain [Unknown]
  - Blood magnesium increased [Unknown]
  - Menstrual disorder [Unknown]
  - Toothache [Unknown]
  - Hyponatraemia [Unknown]
  - Hyperkalaemia [Unknown]
  - Pruritus [Unknown]
  - Anaemia [Unknown]
  - Blood pressure increased [Unknown]
  - Suicide attempt [Unknown]
  - Pyrexia [Unknown]
  - Dizziness [Unknown]
  - Diarrhoea [Unknown]
  - Anxiety [Unknown]
  - Visual impairment [Unknown]
  - Ear swelling [Unknown]
  - Blood chloride decreased [Unknown]
  - General physical health deterioration [Fatal]
  - Electrocardiogram QT prolonged [Unknown]
  - Fatigue [Unknown]
  - Blood glucose increased [Unknown]
  - Hypoacusis [Unknown]
  - Depression [Unknown]
  - Renal impairment [Unknown]
  - Nausea [Unknown]
  - Gastrointestinal disorder [Unknown]
  - Hypercholesterolaemia [Unknown]
  - Liver function test abnormal [Unknown]
